FAERS Safety Report 24448426 (Version 2)
Quarter: 2024Q4

REPORT INFORMATION
  Report Type: Spontaneous
  Country: PR (occurrence: US)
  Receive Date: 20241017
  Receipt Date: 20241105
  Transmission Date: 20250115
  Serious: No
  Sender: Haleon PLC
  Company Number: PR-HALEON-2202552

PATIENT
  Age: 55 Year
  Sex: Male

DRUGS (1)
  1. ALLI [Suspect]
     Active Substance: ORLISTAT
     Indication: Gastrooesophageal reflux disease
     Dates: start: 20240814, end: 20240928

REACTIONS (3)
  - Product use in unapproved indication [Unknown]
  - Product quality issue [Unknown]
  - Therapeutic product effect decreased [Unknown]
